FAERS Safety Report 4549935-X (Version None)
Quarter: 2005Q1

REPORT INFORMATION
  Report Type: 
  Country: None (occurrence: None)
  Receive Date: 20050112
  Receipt Date: 20041218
  Transmission Date: 20050727
  Serious: Yes (Life-Threatening, Hospitalization)
  Sender: FDA-Public Use
  Company Number: PHBS2004MY17076

PATIENT
  Age: 30 Year
  Sex: Female
  Weight: 68 kg

DRUGS (3)
  1. OXYTOCIN [Suspect]
     Dosage: 1 ML, ONCE/SINGLE
     Route: 030
     Dates: start: 20041119
  2. PITOCIN [Concomitant]
     Route: 042
  3. CYTOTEC [Concomitant]
     Dosage: 2 DF, UNK

REACTIONS (6)
  - CARDIAC ARREST [None]
  - DISSEMINATED INTRAVASCULAR COAGULATION [None]
  - HYPOTENSION [None]
  - HYPOVOLAEMIC SHOCK [None]
  - HYSTERECTOMY [None]
  - POSTPARTUM HAEMORRHAGE [None]
